FAERS Safety Report 10018952 (Version 1)
Quarter: 2014Q1

REPORT INFORMATION
  Report Type: Spontaneous
  Country: US (occurrence: US)
  Receive Date: 20140318
  Receipt Date: 20140318
  Transmission Date: 20141002
  Serious: No
  Sender: FDA-Public Use
  Company Number: US-009507513-1403USA007873

PATIENT
  Sex: Male

DRUGS (2)
  1. MIRALAX [Suspect]
     Indication: CONSTIPATION
     Dosage: UNK, QD
     Route: 048
  2. METHADONE HYDROCHLORIDE [Concomitant]
     Indication: PAIN
     Dosage: UNK, UNKNOWN

REACTIONS (2)
  - Overdose [Unknown]
  - Drug effect decreased [Unknown]
